FAERS Safety Report 20546361 (Version 1)
Quarter: 2022Q1

REPORT INFORMATION
  Report Type: Spontaneous
  Country: US (occurrence: None)
  Receive Date: 20220303
  Receipt Date: 20220303
  Transmission Date: 20220423
  Serious: No
  Sender: FDA-Public Use
  Company Number: 2022A091298

PATIENT
  Sex: Female

DRUGS (2)
  1. SYMBICORT [Suspect]
     Active Substance: BUDESONIDE\FORMOTEROL FUMARATE DIHYDRATE
     Indication: Asthma
     Dosage: 160/4.5, 2 PUFFS
     Route: 055
  2. TUDORZA PRESSAIR [Suspect]
     Active Substance: ACLIDINIUM BROMIDE
     Indication: Emphysema
     Route: 055
     Dates: start: 2013

REACTIONS (7)
  - Eye movement disorder [Unknown]
  - Malaise [Unknown]
  - Oxygen consumption [Unknown]
  - Fatigue [Unknown]
  - Irritability [Unknown]
  - Stress [Unknown]
  - Incorrect drug administration rate [Unknown]
